FAERS Safety Report 13521994 (Version 1)
Quarter: 2017Q2

REPORT INFORMATION
  Report Type: Spontaneous
  Country: US (occurrence: US)
  Receive Date: 20170505
  Receipt Date: 20170505
  Transmission Date: 20170830
  Serious: No
  Sender: FDA-Public Use
  Company Number: None

PATIENT
  Age: 61 Year
  Sex: Female
  Weight: 77.63 kg

DRUGS (2)
  1. ESTRING [Suspect]
     Active Substance: ESTRADIOL
     Indication: ATROPHIC VULVOVAGINITIS
     Route: 067
  2. ESTRADIOL 0.1MG BUM CREAM [Suspect]
     Active Substance: ESTRADIOL
     Indication: ATROPHIC VULVOVAGINITIS
     Route: 067
     Dates: start: 200706, end: 200709

REACTIONS (6)
  - Application site laceration [None]
  - Headache [None]
  - Fungal infection [None]
  - Dry skin [None]
  - Vaginal disorder [None]
  - Haemorrhage [None]

NARRATIVE: CASE EVENT DATE: 2007
